FAERS Safety Report 4339653-5 (Version None)
Quarter: 2004Q1

REPORT INFORMATION
  Report Type: 
  Country: None (occurrence: None)
  Receive Date: 20040329
  Receipt Date: 20040101
  Transmission Date: 20041129
  Serious: No
  Sender: FDA-Public Use
  Company Number: 04P-163-0246270-00

PATIENT
  Age: 60 Year
  Sex: Female

DRUGS (6)
  1. HUMIRA [Suspect]
     Indication: RHEUMATOID ARTHRITIS
     Dosage: 40 MG, 1 IN 2 WK, SUBCUTANEOUS
     Route: 058
     Dates: start: 20030701
  2. DARVOCET [Concomitant]
  3. CETIRIZINE HCL [Concomitant]
  4. DIPHENHYDRAMINE HCL [Concomitant]
  5. ASCORBIC ACID [Concomitant]
  6. TOCOPHEROL CONCENTRATE CAP [Concomitant]

REACTIONS (7)
  - BRONCHITIS [None]
  - INJECTION SITE BURNING [None]
  - INJECTION SITE STINGING [None]
  - PRURITUS [None]
  - RASH [None]
  - RASH SCALY [None]
  - SINUSITIS [None]
